FAERS Safety Report 16938739 (Version 2)
Quarter: 2019Q4

REPORT INFORMATION
  Report Type: Report from Study
  Country: HN (occurrence: HN)
  Receive Date: 20191020
  Receipt Date: 20191029
  Transmission Date: 20200122
  Serious: Yes (Death, Hospitalization, Other)
  Sender: FDA-Public Use
  Company Number: NVSC2019HN010523

PATIENT
  Age: 65 Year
  Sex: Female

DRUGS (7)
  1. EXFORGE [Concomitant]
     Active Substance: AMLODIPINE BESYLATE\VALSARTAN
     Indication: HYPERTENSION
     Dosage: UNK
     Route: 065
  2. MICCIL [Concomitant]
     Indication: PULMONARY OEDEMA
     Dosage: UNK
     Route: 065
  3. VYMADA [Suspect]
     Active Substance: SACUBITRIL\VALSARTAN
     Indication: CARDIAC FAILURE
     Dosage: 50 MG, Q12H
     Route: 048
     Dates: start: 201812, end: 20190715
  4. EXFORGE HCT [Concomitant]
     Active Substance: AMLODIPINE BESYLATE\HYDROCHLOROTHIAZIDE\VALSARTAN
     Indication: HYPERTENSION
     Dosage: UNK
     Route: 065
  5. EUTIROX [Concomitant]
     Active Substance: LEVOTHYROXINE SODIUM
     Indication: HYPOTHYROIDISM
     Dosage: UNK
     Route: 065
     Dates: start: 2017
  6. INSULIN [Concomitant]
     Active Substance: INSULIN NOS
     Indication: DIABETES MELLITUS
     Dosage: UNK
     Route: 065
     Dates: start: 2013
  7. ALLOPURINE [Concomitant]
     Indication: BLOOD URIC ACID INCREASED
     Dosage: UNK
     Route: 065
     Dates: start: 2017

REACTIONS (10)
  - Pulmonary oedema [Unknown]
  - Respiratory failure [Fatal]
  - Diabetic neuropathy [Fatal]
  - Syncope [Unknown]
  - Cardiac failure [Fatal]
  - Pleural disorder [Fatal]
  - Loss of consciousness [Unknown]
  - Seizure [Unknown]
  - Respiratory arrest [Unknown]
  - Pyrexia [Not Recovered/Not Resolved]

NARRATIVE: CASE EVENT DATE: 201906
